FAERS Safety Report 18366189 (Version 1)
Quarter: 2020Q4

REPORT INFORMATION
  Report Type: Spontaneous
  Country: US (occurrence: US)
  Receive Date: 20201009
  Receipt Date: 20201009
  Transmission Date: 20210114
  Serious: No
  Sender: FDA-Public Use
  Company Number: US-ROMARKLABS-2020-US-000182

PATIENT
  Age: 37 Year
  Sex: Female

DRUGS (1)
  1. ALINIA [Suspect]
     Active Substance: NITAZOXANIDE
     Indication: PRODUCT USED FOR UNKNOWN INDICATION
     Dosage: TAKE ONE TABLET BY MOUTH TWICE DAILY
     Route: 048
     Dates: start: 202002, end: 202006

REACTIONS (6)
  - Dizziness [Unknown]
  - Weight decreased [Unknown]
  - Anxiety [Unknown]
  - Malaise [Unknown]
  - Gastritis [Unknown]
  - Cardiovascular symptom [Unknown]

NARRATIVE: CASE EVENT DATE: 20200613
